FAERS Safety Report 4716732-1 (Version None)
Quarter: 2005Q3

REPORT INFORMATION
  Report Type: 
  Country: None (occurrence: None)
  Receive Date: 20050714
  Receipt Date: 20050606
  Transmission Date: 20060218
  Serious: Yes (Hospitalization)
  Sender: FDA-Public Use
  Company Number: 2005-130218-NL

PATIENT
  Age: 40 Year
  Sex: Male

DRUGS (1)
  1. MIRTAZAPINE [Suspect]
     Indication: DEPRESSION
     Dosage: 1.8 G ONCE

REACTIONS (10)
  - DEHYDRATION [None]
  - DIZZINESS [None]
  - HEADACHE [None]
  - HEPATITIS [None]
  - NAUSEA [None]
  - OVERDOSE [None]
  - RHABDOMYOLYSIS [None]
  - SINUS TACHYCARDIA [None]
  - TREMOR [None]
  - VISION BLURRED [None]
